FAERS Safety Report 11411088 (Version 2)
Quarter: 2015Q3

REPORT INFORMATION
  Report Type: Spontaneous
  Country: US (occurrence: US)
  Receive Date: 20150821
  Receipt Date: 20150903
  Transmission Date: 20151125
  Serious: No
  Sender: FDA-Public Use
  Company Number: US-ELI_LILLY_AND_COMPANY-US201003004314

PATIENT
  Age: 62 Year
  Sex: Female

DRUGS (6)
  1. NOVOLIN N [Concomitant]
     Active Substance: INSULIN HUMAN
  2. METFORMIN [Concomitant]
     Active Substance: METFORMIN HYDROCHLORIDE
     Dosage: 500 MG, 3/D
  3. HUMALOG [Suspect]
     Active Substance: INSULIN LISPRO
     Indication: DIABETES MELLITUS
     Dosage: 10 U, 3/D
     Dates: start: 201002
  4. HUMULIN N [Suspect]
     Active Substance: INSULIN HUMAN
     Dosage: 60 U, EACH EVENING
     Dates: start: 200912, end: 20100316
  5. NOVOLIN R [Concomitant]
     Active Substance: INSULIN HUMAN
  6. HUMULIN N [Suspect]
     Active Substance: INSULIN HUMAN
     Indication: DIABETES MELLITUS
     Dosage: 95 U, EACH MORNING
     Dates: start: 200912, end: 20100316

REACTIONS (3)
  - Blood glucose increased [Recovering/Resolving]
  - Asthenia [Recovering/Resolving]
  - Anxiety [Unknown]

NARRATIVE: CASE EVENT DATE: 20100316
